FAERS Safety Report 10161327 (Version 2)
Quarter: 2014Q2

REPORT INFORMATION
  Report Type: Spontaneous
  Country: US (occurrence: US)
  Receive Date: 20140509
  Receipt Date: 20140606
  Transmission Date: 20141212
  Serious: Yes (Other)
  Sender: FDA-Public Use
  Company Number: US-AMGEN INC.-USASP2014032802

PATIENT
  Age: 63 Year
  Sex: Female

DRUGS (2)
  1. ENBREL [Suspect]
     Indication: PSORIATIC ARTHROPATHY
     Dosage: 50 MG, QWK
     Route: 058
     Dates: start: 20130515
  2. ENBREL [Suspect]
     Indication: PSORIASIS

REACTIONS (7)
  - Psoriatic arthropathy [Not Recovered/Not Resolved]
  - Feeling hot [Recovered/Resolved]
  - Overdose [Not Recovered/Not Resolved]
  - Injection related reaction [Recovered/Resolved]
  - Erythema [Recovered/Resolved]
  - Injection site erythema [Recovered/Resolved]
  - Injection site induration [Recovered/Resolved]
